FAERS Safety Report 4909417-X (Version None)
Quarter: 2006Q1

REPORT INFORMATION
  Report Type: 
  Country: None (occurrence: None)
  Receive Date: 20060213
  Receipt Date: 20051020
  Transmission Date: 20060701
  Serious: Yes (Disabling)
  Sender: FDA-Public Use
  Company Number: GB-AVENTIS-200519415GDDC

PATIENT
  Age: 72 Year
  Sex: Female
  Weight: 85.4 kg

DRUGS (6)
  1. LANTUS [Suspect]
     Indication: BLOOD GLUCOSE ABNORMAL
     Dosage: DOSE UNIT: UNITS
     Route: 058
     Dates: start: 20031223
  2. LANTUS [Suspect]
     Indication: DIABETES MELLITUS
     Dosage: DOSE UNIT: UNITS
     Route: 058
     Dates: start: 20031223
  3. NOVORAPID [Suspect]
  4. METFORMIN HYDROCHLORIDE [Concomitant]
     Indication: DIABETES MELLITUS
     Route: 048
  5. THYROXIN [Concomitant]
     Indication: THYROID FUNCTION TEST ABNORMAL
     Route: 048
  6. SIMVASTATIN [Concomitant]

REACTIONS (4)
  - DERMATITIS [None]
  - DRY SKIN [None]
  - PAIN OF SKIN [None]
  - SKIN EXFOLIATION [None]
